FAERS Safety Report 9543845 (Version 2)
Quarter: 2013Q4

REPORT INFORMATION
  Report Type: Spontaneous
  Country: US (occurrence: US)
  Receive Date: 20130923
  Receipt Date: 20131011
  Transmission Date: 20140711
  Serious: Yes (Death)
  Sender: FDA-Public Use
  Company Number: US-GLAXOSMITHKLINE-A1042287A

PATIENT
  Age: 77 Year
  Sex: Male
  Weight: 76.4 kg

DRUGS (16)
  1. VOTRIENT [Suspect]
     Indication: RENAL CELL CARCINOMA
     Dosage: 200MG TWICE PER DAY
     Route: 048
  2. AMBIEN [Concomitant]
  3. AMLODIPINE BESYLATE [Concomitant]
  4. AVODART [Concomitant]
  5. COLACE [Concomitant]
  6. DIGOXIN [Concomitant]
  7. FIBERCON [Concomitant]
  8. FLOMAX [Concomitant]
  9. GLUCOVANCE [Concomitant]
  10. LEVOTHYROXINE SODIUM [Concomitant]
  11. LISINOPRIL [Concomitant]
  12. METOPROLOL TARTRATE [Concomitant]
  13. OXYCODONE-ACETAMINOPHEN [Concomitant]
  14. RANITIDINE [Concomitant]
  15. SIMVASTATIN [Concomitant]
  16. TRICOR [Concomitant]

REACTIONS (1)
  - Death [Fatal]
